FAERS Safety Report 24151603 (Version 1)
Quarter: 2024Q3

REPORT INFORMATION
  Report Type: Spontaneous
  Country: US (occurrence: US)
  Receive Date: 20240730
  Receipt Date: 20240730
  Transmission Date: 20241017
  Serious: No
  Sender: PERRIGO
  Company Number: US-PERRIGO-24US001360

PATIENT

DRUGS (2)
  1. LORATADINE [Suspect]
     Active Substance: LORATADINE
     Indication: Rhinorrhoea
     Dosage: UNKNOWN, UNKNOWN
     Route: 048
  2. LORATADINE [Suspect]
     Active Substance: LORATADINE
     Indication: Accidental exposure to product
     Dosage: 10 MG, SINGLE
     Route: 048
     Dates: start: 20240205, end: 20240205

REACTIONS (2)
  - Drug ineffective [Unknown]
  - Extra dose administered [Recovered/Resolved]

NARRATIVE: CASE EVENT DATE: 20240205
